FAERS Safety Report 4294532-7 (Version None)
Quarter: 2004Q1

REPORT INFORMATION
  Report Type: 
  Country: None (occurrence: None)
  Receive Date: 20040213
  Receipt Date: 20040205
  Transmission Date: 20041129
  Serious: Yes (Other)
  Sender: FDA-Public Use
  Company Number: 200410924US

PATIENT
  Sex: Male

DRUGS (1)
  1. LOVENOX [Suspect]

REACTIONS (2)
  - HAEMOGLOBIN DECREASED [None]
  - PNEUMOTHORAX [None]
